FAERS Safety Report 8385635-6 (Version None)
Quarter: 2012Q2

REPORT INFORMATION
  Report Type: 
  Country: None (occurrence: None)
  Receive Date: 20120525
  Receipt Date: 20120521
  Transmission Date: 20120825
  Serious: No
  Sender: FDA-Public Use
  Company Number: US-PFIZER INC-2012117238

PATIENT
  Sex: Female
  Weight: 62 kg

DRUGS (2)
  1. MOTRIN [Concomitant]
     Indication: ARTHRITIS
     Dosage: 200 MG, TWO TIMES A WEEK AS NEEDED
  2. FLECTOR [Suspect]
     Indication: BACK DISORDER
     Dosage: UNK
     Route: 062
     Dates: start: 20120512

REACTIONS (1)
  - DRUG INEFFECTIVE [None]
